FAERS Safety Report 7483408-X (Version None)
Quarter: 2011Q2

REPORT INFORMATION
  Report Type: 
  Country: None (occurrence: None)
  Receive Date: 20110509
  Receipt Date: 20110425
  Transmission Date: 20111010
  Serious: Yes (Death)
  Sender: FDA-Public Use
  Company Number: 2011P1006231

PATIENT
  Age: 54 Year
  Sex: Female

DRUGS (1)
  1. FENTANYL-75 [Suspect]

REACTIONS (2)
  - ACUTE RESPIRATORY FAILURE [None]
  - TOXICITY TO VARIOUS AGENTS [None]
